FAERS Safety Report 7092862-7 (Version None)
Quarter: 2010Q4

REPORT INFORMATION
  Report Type: 
  Country: None (occurrence: None)
  Receive Date: 20101110
  Receipt Date: 20101102
  Transmission Date: 20110411
  Serious: No
  Sender: FDA-Public Use
  Company Number: US-PFIZER INC-2010139640

PATIENT
  Sex: Male

DRUGS (5)
  1. NEURONTIN [Suspect]
     Dosage: UNK
  2. ACETYLSALICYLIC ACID [Concomitant]
     Dosage: UNK
  3. TAMSULOSIN [Concomitant]
     Dosage: UNK
  4. LYRICA [Concomitant]
     Dosage: 50 MG, UNK
  5. LIPITOR [Concomitant]
     Dosage: UNK

REACTIONS (2)
  - FATIGUE [None]
  - FEELING ABNORMAL [None]
